FAERS Safety Report 25169923 (Version 3)
Quarter: 2025Q2

REPORT INFORMATION
  Report Type: Spontaneous
  Country: VE (occurrence: VE)
  Receive Date: 20250407
  Receipt Date: 20250425
  Transmission Date: 20250717
  Serious: Yes (Death, Life-Threatening)
  Sender: NOVARTIS
  Company Number: VE-002147023-NVSC2025VE032488

PATIENT
  Sex: Male

DRUGS (1)
  1. GLIVEC [Suspect]
     Active Substance: IMATINIB MESYLATE
     Indication: Chronic myeloid leukaemia
     Route: 065

REACTIONS (7)
  - Death [Fatal]
  - Haemoglobin decreased [Unknown]
  - White blood cell count increased [Unknown]
  - Amoebiasis [Unknown]
  - Pain in extremity [Unknown]
  - Gait disturbance [Unknown]
  - Malaise [Unknown]
